FAERS Safety Report 19844644 (Version 4)
Quarter: 2022Q1

REPORT INFORMATION
  Report Type: Report from Study
  Country: CA (occurrence: CA)
  Receive Date: 20210917
  Receipt Date: 20220209
  Transmission Date: 20220423
  Serious: Yes (Other)
  Sender: FDA-Public Use
  Company Number: CA-UCBSA-2021035322

PATIENT
  Age: 30 Year
  Sex: Female

DRUGS (3)
  1. CERTOLIZUMAB PEGOL [Suspect]
     Active Substance: CERTOLIZUMAB PEGOL
     Indication: Ankylosing spondylitis
     Dosage: 400 MILLIGRAM, EV 2 WEEKS(QOW)
     Route: 058
     Dates: start: 20210721, end: 20210818
  2. CERTOLIZUMAB PEGOL [Suspect]
     Active Substance: CERTOLIZUMAB PEGOL
     Dosage: UNK
  3. COVID-19 VACCINE [Concomitant]
     Indication: Product used for unknown indication

REACTIONS (11)
  - Pneumonia [Recovering/Resolving]
  - Abortion spontaneous [Recovered/Resolved]
  - Injection site swelling [Unknown]
  - Injection site erythema [Unknown]
  - Malaise [Unknown]
  - Oropharyngeal pain [Unknown]
  - Sinus pain [Unknown]
  - COVID-19 immunisation [Unknown]
  - Nasopharyngitis [Recovered/Resolved]
  - Maternal exposure during pregnancy [Unknown]
  - Maternal exposure before pregnancy [Unknown]

NARRATIVE: CASE EVENT DATE: 20210815
